FAERS Safety Report 17846541 (Version 1)
Quarter: 2020Q2

REPORT INFORMATION
  Report Type: Spontaneous
  Country: US (occurrence: US)
  Receive Date: 20200601
  Receipt Date: 20200601
  Transmission Date: 20200714
  Serious: Yes (Death)
  Sender: FDA-Public Use
  Company Number: None

PATIENT
  Age: 79 Year
  Sex: Female
  Weight: 49.19 kg

DRUGS (6)
  1. TYKERB [Suspect]
     Active Substance: LAPATINIB DITOSYLATE
     Indication: OVARIAN CANCER
     Route: 048
     Dates: start: 20190621, end: 20200601
  2. CAPECITABINE. [Suspect]
     Active Substance: CAPECITABINE
     Indication: OVARIAN CANCER
     Route: 048
     Dates: start: 20190621, end: 20200601
  3. LETROZOLE. [Concomitant]
     Active Substance: LETROZOLE
  4. ENALAPRIL [Concomitant]
     Active Substance: ENALAPRIL
  5. TRADJENTA [Concomitant]
     Active Substance: LINAGLIPTIN
  6. ALENDRONATE [Concomitant]
     Active Substance: ALENDRONATE SODIUM

REACTIONS (1)
  - Death [None]

NARRATIVE: CASE EVENT DATE: 20200601
